FAERS Safety Report 26211089 (Version 1)
Quarter: 2025Q4

REPORT INFORMATION
  Report Type: Spontaneous
  Country: US (occurrence: US)
  Receive Date: 20251230
  Receipt Date: 20251230
  Transmission Date: 20260118
  Serious: Yes (Other)
  Sender: AMGEN
  Company Number: US-AMGEN-USASP2025254151

PATIENT
  Age: 75 Year
  Sex: Female

DRUGS (6)
  1. BEVACIZUMAB [Suspect]
     Active Substance: BEVACIZUMAB
     Indication: Ovarian cancer metastatic
     Dosage: UNK (FOR 4 MONTHS)
     Route: 065
  2. LABETALOL [Concomitant]
     Active Substance: LABETALOL
     Indication: Hypertensive urgency
     Route: 040
  3. NIFEDIPINE [Concomitant]
     Active Substance: NIFEDIPINE
     Indication: Hypertensive urgency
     Route: 040
  4. CISPLATIN [Concomitant]
     Active Substance: CISPLATIN
     Indication: Ovarian cancer metastatic
  5. GEMCITABINE [Concomitant]
     Active Substance: GEMCITABINE
     Indication: Ovarian cancer metastatic
  6. OLAPARIB [Concomitant]
     Active Substance: OLAPARIB
     Indication: Ovarian cancer metastatic

REACTIONS (10)
  - Hypothyroidism [Recovering/Resolving]
  - Thrombocytopenia [Unknown]
  - Hypertensive urgency [Unknown]
  - Renal impairment [Unknown]
  - Dysarthria [Unknown]
  - Blood pressure systolic increased [Unknown]
  - Anaemia macrocytic [Unknown]
  - Blood lactate dehydrogenase increased [Unknown]
  - Haptoglobin increased [Unknown]
  - Hypercholesterolaemia [Unknown]
